FAERS Safety Report 24775163 (Version 1)
Quarter: 2024Q4

REPORT INFORMATION
  Report Type: Spontaneous
  Country: IT (occurrence: IT)
  Receive Date: 20241226
  Receipt Date: 20241226
  Transmission Date: 20250114
  Serious: Yes (Hospitalization, Other)
  Sender: AUROBINDO
  Company Number: IT-MINISAL02-1015554

PATIENT
  Age: 53 Year
  Sex: Female

DRUGS (2)
  1. IBUPROFEN [Suspect]
     Active Substance: IBUPROFEN
     Indication: Product used for unknown indication
     Dosage: UNK
     Route: 065
     Dates: start: 20241207
  2. FOSFOMYCIN TROMETHAMINE [Suspect]
     Active Substance: FOSFOMYCIN TROMETHAMINE
     Indication: Product used for unknown indication
     Dosage: UNK
     Route: 065
     Dates: start: 20241207

REACTIONS (3)
  - Anaphylactic reaction [Recovering/Resolving]
  - Face oedema [Recovering/Resolving]
  - Urticaria [Recovering/Resolving]

NARRATIVE: CASE EVENT DATE: 20241207
